FAERS Safety Report 7135390 (Version 2)
Quarter: 2014Q2

REPORT INFORMATION
  Report Type: Spontaneous
  Country: None (occurrence: None)
  Receive Date: 20090914
  Receipt Date: 20140416
  Transmission Date: 20141212
  Serious: Yes (Hospitalization, Other)
  Sender: FDA-Public Use
  Company Number: AUR-APL-2009-00455

PATIENT
  Age: 13 Year
  Sex: Male
  Weight: 61 kg

DRUGS (9)
  1. ONDANSETRON [Suspect]
     Indication: PRODUCT USED FOR UNKNOWN INDICATION
     Dosage: MAXIMUM 8 MG (2 IN 1 D), UNKNOWN
     Dates: start: 20080714
  2. OMEPRAZOLE [Suspect]
     Indication: PRODUCT USED FOR UNKNOWN INDICATION
     Dosage: 1 IN 1 D, PER ORAL
     Route: 048
     Dates: start: 20080307
  3. BACTRIM [Suspect]
     Indication: PRODUCT USED FOR UNKNOWN INDICATION
     Route: 048
     Dates: start: 20080603
  4. CYCLOPHOSPHAMIDE [Suspect]
     Indication: PRODUCT USED FOR UNKNOWN INDICATION
     Dosage: 1000 MG/M2-IV
     Route: 042
     Dates: start: 20080714
  5. CYTARABINE (CYTARABINE) [Suspect]
     Indication: PRODUCT USED FOR UNKNOWN INDICATION
     Route: 042
     Dates: start: 20080716
  6. METHOTREXATE (METHOTREXATE) [Suspect]
     Indication: PRODUCT USED FOR UNKNOWN INDICATION
     Dosage: 75MG/M2-DAILY-IV
     Route: 037
     Dates: start: 20080716
  7. METHYLPREDNISOLONE (METHYLPREDNISOLONE) [Suspect]
     Indication: PRODUCT USED FOR UNKNOWN INDICATION
     Route: 037
     Dates: start: 20080716
  8. THIOGUANINE (TIOGUANINE) [Concomitant]
  9. MESNA (MESNA) [Concomitant]

REACTIONS (12)
  - Swelling face [None]
  - Facial paresis [None]
  - Dysarthria [None]
  - Hemiparesis [None]
  - Haemoglobin decreased [None]
  - Platelet count decreased [None]
  - Migraine [None]
  - Transient ischaemic attack [None]
  - Vasculitis [None]
  - Haemorrhage [None]
  - Nervous system disorder [None]
  - Sensory loss [None]
